FAERS Safety Report 19421830 (Version 14)
Quarter: 2022Q1

REPORT INFORMATION
  Report Type: Report from Study
  Country: NL (occurrence: NL)
  Receive Date: 20210615
  Receipt Date: 20220127
  Transmission Date: 20220424
  Serious: Yes (Hospitalization, Other)
  Sender: FDA-Public Use
  Company Number: NL-BEH-2021132927

PATIENT
  Age: 40 Year
  Sex: Female
  Weight: 58 kg

DRUGS (35)
  1. PRIVIGEN [Suspect]
     Active Substance: HUMAN IMMUNOGLOBULIN G
     Indication: Encephalopathy
     Dosage: 20 GRAM (200 ML), 3 X PER 5 WEEKS
     Route: 042
  2. PRIVIGEN [Suspect]
     Active Substance: HUMAN IMMUNOGLOBULIN G
     Indication: Anti-GAD antibody
     Dosage: UNK
     Route: 042
     Dates: start: 20171106, end: 20171106
  3. PRIVIGEN [Suspect]
     Active Substance: HUMAN IMMUNOGLOBULIN G
     Indication: Epilepsy
     Dosage: UNK
     Route: 042
     Dates: start: 20171106, end: 20171106
  4. PRIVIGEN [Suspect]
     Active Substance: HUMAN IMMUNOGLOBULIN G
     Dosage: UNK
     Route: 042
     Dates: start: 20210608, end: 20210608
  5. PRIVIGEN [Suspect]
     Active Substance: HUMAN IMMUNOGLOBULIN G
     Dosage: UNK
     Route: 042
     Dates: start: 20210608, end: 20210608
  6. PRIVIGEN [Suspect]
     Active Substance: HUMAN IMMUNOGLOBULIN G
     Dosage: UNK
     Route: 042
     Dates: start: 20210608, end: 20210608
  7. PRIVIGEN [Suspect]
     Active Substance: HUMAN IMMUNOGLOBULIN G
     Dosage: UNK
     Route: 042
     Dates: start: 20210609, end: 20210609
  8. PRIVIGEN [Suspect]
     Active Substance: HUMAN IMMUNOGLOBULIN G
     Dosage: UNK
     Route: 042
     Dates: start: 20210609, end: 20210609
  9. PRIVIGEN [Suspect]
     Active Substance: HUMAN IMMUNOGLOBULIN G
     Dosage: UNK
     Route: 042
     Dates: start: 20210609, end: 20210609
  10. PRIVIGEN [Suspect]
     Active Substance: HUMAN IMMUNOGLOBULIN G
     Dosage: UNK
     Route: 042
     Dates: start: 20210923, end: 20210923
  11. PRIVIGEN [Suspect]
     Active Substance: HUMAN IMMUNOGLOBULIN G
     Dosage: UNK
     Route: 042
     Dates: start: 20210923, end: 20210923
  12. PRIVIGEN [Suspect]
     Active Substance: HUMAN IMMUNOGLOBULIN G
     Dosage: UNK
     Route: 042
     Dates: start: 20210923, end: 20210923
  13. PRIVIGEN [Suspect]
     Active Substance: HUMAN IMMUNOGLOBULIN G
     Dosage: UNK
     Route: 042
     Dates: start: 20211027, end: 20211027
  14. PRIVIGEN [Suspect]
     Active Substance: HUMAN IMMUNOGLOBULIN G
     Dosage: UNK
     Route: 042
     Dates: start: 20211027, end: 20211027
  15. PRIVIGEN [Suspect]
     Active Substance: HUMAN IMMUNOGLOBULIN G
     Dosage: UNK
     Route: 042
     Dates: start: 20211027, end: 20211027
  16. PRIVIGEN [Suspect]
     Active Substance: HUMAN IMMUNOGLOBULIN G
     Dosage: UNK
     Route: 042
     Dates: start: 20211029
  17. PRIVIGEN [Suspect]
     Active Substance: HUMAN IMMUNOGLOBULIN G
     Dosage: UNK
     Route: 042
     Dates: start: 20211029
  18. PRIVIGEN [Suspect]
     Active Substance: HUMAN IMMUNOGLOBULIN G
     Dosage: UNK
     Route: 042
     Dates: start: 20211029
  19. PRIVIGEN [Suspect]
     Active Substance: HUMAN IMMUNOGLOBULIN G
     Dosage: UNK
     Route: 042
     Dates: start: 20211206
  20. PRIVIGEN [Suspect]
     Active Substance: HUMAN IMMUNOGLOBULIN G
     Dosage: UNK
     Route: 042
     Dates: start: 20211206
  21. PRIVIGEN [Suspect]
     Active Substance: HUMAN IMMUNOGLOBULIN G
     Dosage: UNK
     Route: 042
     Dates: start: 20211206
  22. PRIVIGEN [Suspect]
     Active Substance: HUMAN IMMUNOGLOBULIN G
     Dosage: 35 GRAM, 3 DAYS PER 5 WEEKS
     Route: 042
  23. PRIVIGEN [Suspect]
     Active Substance: HUMAN IMMUNOGLOBULIN G
     Dosage: UNK
     Route: 042
     Dates: start: 20220110
  24. PRIVIGEN [Suspect]
     Active Substance: HUMAN IMMUNOGLOBULIN G
     Dosage: UNK
     Route: 042
     Dates: start: 20220110
  25. PRIVIGEN [Suspect]
     Active Substance: HUMAN IMMUNOGLOBULIN G
     Dosage: UNK
     Route: 042
     Dates: start: 20220110
  26. PRIVIGEN [Suspect]
     Active Substance: HUMAN IMMUNOGLOBULIN G
     Dosage: UNK
     Route: 042
     Dates: start: 20220111
  27. PRIVIGEN [Suspect]
     Active Substance: HUMAN IMMUNOGLOBULIN G
     Dosage: UNK
     Route: 042
     Dates: start: 20220111
  28. BACLOFEN [Concomitant]
     Active Substance: BACLOFEN
     Dosage: 15 MILLIGRAM, BID
     Route: 065
  29. DIAZEPAM [Concomitant]
     Active Substance: DIAZEPAM
     Dosage: 55 MILLIGRAM, QD
     Route: 065
  30. LAMOTRIGINE [Concomitant]
     Active Substance: LAMOTRIGINE
     Dosage: 150 MILLIGRAM, BID
     Route: 065
  31. MIDAZOLAM [Concomitant]
     Active Substance: MIDAZOLAM
     Dosage: 2.5 MILLIGRAM, IF NEEDED, UP TO MAX 4X PER DAY
     Route: 045
  32. EPINEPHRINE [Suspect]
     Active Substance: EPINEPHRINE
     Dosage: 1 X PER ONCE
     Route: 042
  33. CLEMASTINE FUMARATE [Concomitant]
     Active Substance: CLEMASTINE FUMARATE
     Dosage: 1 DOSAGE FORM X PER ONCE ONE-OFF
     Route: 042
  34. CLEMASTINE FUMARATE [Concomitant]
     Active Substance: CLEMASTINE FUMARATE
     Dosage: 1 DOSAGE FORM X PER ONCE ONE-OFF
     Route: 048
  35. ASPIRIN [Concomitant]
     Active Substance: ASPIRIN

REACTIONS (31)
  - Epilepsy [Recovered/Resolved]
  - Tongue biting [Recovered/Resolved]
  - Myalgia [Recovered/Resolved]
  - Simple partial seizures [Recovered/Resolved]
  - Fall [Unknown]
  - Contusion [Recovered/Resolved]
  - Myalgia [Recovered/Resolved]
  - No adverse event [Unknown]
  - Off label use [Unknown]
  - Extravasation [Unknown]
  - Agitation [Unknown]
  - Poor quality sleep [Unknown]
  - Headache [Recovered/Resolved]
  - Confusional state [Unknown]
  - Social problem [Unknown]
  - Staphylococcal infection [Unknown]
  - Pain in extremity [Unknown]
  - Arthralgia [Unknown]
  - Skin bacterial infection [Unknown]
  - Arthritis [Unknown]
  - Arthritis [Unknown]
  - Staphylococcal infection [Recovering/Resolving]
  - Epilepsy [Recovered/Resolved]
  - Unresponsive to stimuli [Recovered/Resolved]
  - Respiratory rate increased [Recovered/Resolved]
  - Tongue biting [Recovered/Resolved]
  - Incontinence [Recovered/Resolved]
  - Regurgitation [Recovered/Resolved]
  - Confusional state [Recovered/Resolved]
  - Stress [Recovered/Resolved]
  - Pain [Recovered/Resolved]

NARRATIVE: CASE EVENT DATE: 20210609
